FAERS Safety Report 15805037 (Version 1)
Quarter: 2019Q1

REPORT INFORMATION
  Report Type: Spontaneous
  Country: IT (occurrence: IT)
  Receive Date: 20190110
  Receipt Date: 20190110
  Transmission Date: 20190417
  Serious: Yes (Hospitalization)
  Sender: FDA-Public Use
  Company Number: IT-TEVA-2019-IT-996863

PATIENT
  Age: 12 Year
  Sex: Male

DRUGS (9)
  1. VINDESINE SULFATE [Concomitant]
     Active Substance: VINDESINE SULFATE
  2. LAROXYL [Concomitant]
     Active Substance: AMITRIPTYLINE HYDROCHLORIDE
  3. DEXAMETHASONE. [Concomitant]
     Active Substance: DEXAMETHASONE
  4. METHOTREXATE (METHOTREXATE SODIUM) [Suspect]
     Active Substance: METHOTREXATE SODIUM
     Indication: ACUTE LYMPHOCYTIC LEUKAEMIA
     Dosage: 5 GRAM DAILY;
     Route: 042
     Dates: start: 20181201, end: 20181202
  5. GABAPENTIN. [Concomitant]
     Active Substance: GABAPENTIN
  6. ZOFRAN [Concomitant]
     Active Substance: ONDANSETRON HYDROCHLORIDE
  7. CONTRAMAL [Concomitant]
     Active Substance: TRAMADOL HYDROCHLORIDE
  8. PANTORC [Concomitant]
     Active Substance: PANTOPRAZOLE SODIUM
  9. IFOSFAMIDE. [Concomitant]
     Active Substance: IFOSFAMIDE

REACTIONS (1)
  - Acute kidney injury [Recovering/Resolving]

NARRATIVE: CASE EVENT DATE: 20181202
